FAERS Safety Report 7399440-0 (Version None)
Quarter: 2011Q2

REPORT INFORMATION
  Report Type: 
  Country: None (occurrence: None)
  Receive Date: 20110407
  Receipt Date: 20110325
  Transmission Date: 20111010
  Serious: Yes (Other)
  Sender: FDA-Public Use
  Company Number: PHFR2011GB01924

PATIENT
  Sex: Male
  Weight: 77.1 kg

DRUGS (8)
  1. CLOZARIL [Suspect]
     Indication: SCHIZOPHRENIA
     Dosage: 50 MG AM + 75 MG PM
     Route: 048
     Dates: start: 20110307
  2. ZOPICLONE [Concomitant]
     Indication: INSOMNIA
     Dosage: 7.5 MG, UNK
     Route: 048
  3. LYMECYCLINE [Concomitant]
     Indication: ACNE
     Dosage: 408 MG, UNK
     Route: 048
  4. HYOSCINE HBR HYT [Concomitant]
     Indication: SALIVARY HYPERSECRETION
     Dosage: 300 UG, UNK
     Route: 048
     Dates: start: 20110318
  5. LORAZEPAM [Concomitant]
     Indication: AGITATION
  6. CLOZARIL [Suspect]
     Dosage: 75 MG,
     Route: 048
  7. LANSOPRAZOLE [Concomitant]
     Indication: PEPTIC ULCER
     Dosage: 15 MG, UNK
     Route: 048
  8. LORAZEPAM [Concomitant]
     Indication: ANXIETY
     Dosage: 2 TO 3 MG
     Route: 048
     Dates: start: 20110224

REACTIONS (4)
  - TACHYCARDIA [None]
  - PALPITATIONS [None]
  - DIZZINESS [None]
  - ORTHOSTATIC HYPOTENSION [None]
